FAERS Safety Report 6374582-7 (Version None)
Quarter: 2009Q3

REPORT INFORMATION
  Report Type: 
  Country: None (occurrence: None)
  Receive Date: 20090924
  Receipt Date: 20090717
  Transmission Date: 20100115
  Serious: No
  Sender: FDA-Public Use
  Company Number: US-ASTRAZENECA-2009UW20346

PATIENT
  Age: 50 Year
  Sex: Female
  Weight: 90.7 kg

DRUGS (3)
  1. SEROQUEL XR [Suspect]
     Indication: INSOMNIA
     Route: 048
     Dates: start: 20090101
  2. DEPAKOTE [Concomitant]
  3. CYMBALTA [Concomitant]

REACTIONS (3)
  - FEMALE SEXUAL DYSFUNCTION [None]
  - LETHARGY [None]
  - LOSS OF LIBIDO [None]
